FAERS Safety Report 13661976 (Version 2)
Quarter: 2017Q2

REPORT INFORMATION
  Report Type: Spontaneous
  Country: US (occurrence: US)
  Receive Date: 20170616
  Receipt Date: 20170621
  Transmission Date: 20170830
  Serious: Yes (Other)
  Sender: FDA-Public Use
  Company Number: US-BAUSCH-BL-2017-018982

PATIENT
  Age: 31 Year
  Sex: Female

DRUGS (1)
  1. XENAZINE [Suspect]
     Active Substance: TETRABENAZINE
     Indication: HUNTINGTON^S DISEASE
     Dosage: TWELVE 12.5 MG TABLETS A DAY
     Route: 048
     Dates: start: 201109

REACTIONS (5)
  - Dysarthria [Unknown]
  - Condition aggravated [Unknown]
  - Overdose [Unknown]
  - Laceration [Unknown]
  - Skin abrasion [Unknown]

NARRATIVE: CASE EVENT DATE: 201109
